FAERS Safety Report 5717311-X (Version None)
Quarter: 2008Q2

REPORT INFORMATION
  Report Type: 
  Country: None (occurrence: None)
  Receive Date: 20080424
  Receipt Date: 20080424
  Transmission Date: 20081010
  Serious: Yes (Other)
  Sender: FDA-Public Use
  Company Number: None

PATIENT
  Sex: Female
  Weight: 4.0824 kg

DRUGS (1)
  1. PAXIL CR [Suspect]
     Indication: PANIC ATTACK
     Dosage: 37.5 MG DAILY PO
     Route: 048
     Dates: start: 19991001, end: 20061001

REACTIONS (2)
  - DRUG EXPOSURE DURING PREGNANCY [None]
  - LUNG DISORDER [None]
